FAERS Safety Report 5631857-4 (Version None)
Quarter: 2008Q1

REPORT INFORMATION
  Report Type: 
  Country: None (occurrence: None)
  Receive Date: 20080220
  Receipt Date: 20080205
  Transmission Date: 20080703
  Serious: Yes (Hospitalization)
  Sender: FDA-Public Use
  Company Number: US-BAYER-200813510NA

PATIENT
  Age: 78 Year
  Sex: Female
  Weight: 57 kg

DRUGS (8)
  1. LEUKINE (LYOPHOLIZED) [Suspect]
     Indication: MALIGNANT MELANOMA
     Dosage: TOTAL DAILY DOSE: 250 ?G
     Route: 058
     Dates: start: 20060701, end: 20070701
  2. INTRON A [Suspect]
     Indication: MALIGNANT MELANOMA
  3. SYNTHROID [Concomitant]
     Indication: HYPOTHYROIDISM
  4. ZETIA [Concomitant]
     Indication: BLOOD CHOLESTEROL INCREASED
  5. BONIVA [Concomitant]
     Indication: OSTEOPOROSIS
  6. CALCIUM PLUS D [Concomitant]
     Indication: OSTEOPOROSIS
  7. EVISTA [Concomitant]
     Indication: HOT FLUSH
  8. TENORMIN [Concomitant]
     Indication: HYPERTENSION

REACTIONS (4)
  - FATIGUE [None]
  - NAUSEA [None]
  - VERTIGO [None]
  - VOMITING [None]
